FAERS Safety Report 11132689 (Version 3)
Quarter: 2015Q2

REPORT INFORMATION
  Report Type: Report from Study
  Country: CA (occurrence: CA)
  Receive Date: 20150522
  Receipt Date: 20150624
  Transmission Date: 20150821
  Serious: Yes (Death, Other)
  Sender: FDA-Public Use
  Company Number: CA-TOLMAR, INC.-2015CA004495

PATIENT

DRUGS (1)
  1. ELIGARD [Suspect]
     Active Substance: LEUPROLIDE ACETATE
     Indication: PROSTATE CANCER
     Dosage: 30 MG, UNK
     Route: 065
     Dates: start: 20131111, end: 20150203

REACTIONS (3)
  - Hip fracture [Unknown]
  - Cardiac failure [Fatal]
  - Arterial occlusive disease [Fatal]

NARRATIVE: CASE EVENT DATE: 201504
